FAERS Safety Report 18191969 (Version 2)
Quarter: 2020Q3

REPORT INFORMATION
  Report Type: Spontaneous
  Country: US (occurrence: US)
  Receive Date: 20200825
  Receipt Date: 20200923
  Transmission Date: 20201103
  Serious: No
  Sender: FDA-Public Use
  Company Number: US-MYLANLABS-2020M1072161

PATIENT
  Age: 71 Year
  Sex: Female
  Weight: 140 kg

DRUGS (1)
  1. NOREPINEPHRINE BITARTRATE INJECTION USP [Suspect]
     Active Substance: NOREPINEPHRINE BITARTRATE
     Indication: BLOOD PRESSURE ABNORMAL
     Dosage: STRENGTH 4 (UNIT NOT REPORTED)
     Route: 042
     Dates: start: 20200813, end: 20200813

REACTIONS (2)
  - Mean arterial pressure decreased [Recovering/Resolving]
  - Drug ineffective [Recovering/Resolving]

NARRATIVE: CASE EVENT DATE: 20200813
